FAERS Safety Report 7374735-5 (Version None)
Quarter: 2011Q1

REPORT INFORMATION
  Report Type: 
  Country: None (occurrence: None)
  Receive Date: 20110325
  Receipt Date: 20101122
  Transmission Date: 20110831
  Serious: No
  Sender: FDA-Public Use
  Company Number: US-MYLANLABS-2010S1017266

PATIENT
  Sex: Female
  Weight: 49.67 kg

DRUGS (19)
  1. FENTANYL-100 [Suspect]
     Indication: PLANTAR FASCIITIS
     Dosage: CHANGED Q 72H
     Route: 062
     Dates: start: 20060101
  2. GABAPENTIN [Concomitant]
     Indication: NEURALGIA
  3. FENTANYL-100 [Suspect]
     Dosage: Q3D
     Route: 062
  4. VITAMIN D [Concomitant]
     Route: 048
  5. CITALOPRAM HYDROBROMIDE [Concomitant]
     Indication: DEPRESSION
     Route: 048
  6. FENTANYL-100 [Suspect]
     Indication: FRACTURE
     Dosage: CHANGED Q 72H
     Route: 062
     Dates: start: 20060101
  7. FENTANYL-100 [Suspect]
     Dosage: Q3D
     Route: 062
  8. FENTANYL-100 [Suspect]
     Dosage: Q3D
     Route: 062
  9. EFFEXOR [Concomitant]
     Indication: HOT FLUSH
  10. FENTANYL-100 [Suspect]
     Dosage: Q3D
     Route: 062
  11. FENTANYL-100 [Suspect]
     Indication: BACK PAIN
     Dosage: CHANGED Q 72H
     Route: 062
     Dates: start: 20060101
  12. TIZANIDINE [Concomitant]
     Indication: MUSCLE RELAXANT THERAPY
  13. CLOBETASOL PROPIONATE [Concomitant]
     Dosage: QD
     Route: 061
  14. FENTANYL-100 [Suspect]
     Indication: PIRIFORMIS SYNDROME
     Dosage: CHANGED Q 72H
     Route: 062
     Dates: start: 20060101
  15. FENTANYL-100 [Suspect]
     Indication: MUSCULOSKELETAL PAIN
     Dosage: CHANGED Q 72H
     Route: 062
     Dates: start: 20060101
  16. HYDROCODONE BITARTRATE [Concomitant]
     Dosage: 5MG/325MG
  17. FENTANYL-100 [Suspect]
     Dosage: Q3D
     Route: 062
  18. FISH OIL [Concomitant]
  19. CALCIUM WITH VITAMIN D [Concomitant]
     Indication: SUPPLEMENTATION THERAPY
     Dosage: 600/400MG TABLET
     Route: 048

REACTIONS (4)
  - BACK PAIN [None]
  - DRUG SCREEN NEGATIVE [None]
  - DRUG EFFECT DECREASED [None]
  - WITHDRAWAL SYNDROME [None]
